APPROVED DRUG PRODUCT: DIPYRIDAMOLE
Active Ingredient: DIPYRIDAMOLE
Strength: 5MG/ML
Dosage Form/Route: INJECTABLE;INJECTION
Application: A074956 | Product #001
Applicant: FRESENIUS KABI USA LLC
Approved: Sep 30, 1998 | RLD: No | RS: No | Type: DISCN